FAERS Safety Report 21746025 (Version 1)
Quarter: 2022Q4

REPORT INFORMATION
  Report Type: Spontaneous
  Country: US (occurrence: US)
  Receive Date: 20221219
  Receipt Date: 20221219
  Transmission Date: 20230112
  Serious: No
  Sender: FDA-Public Use
  Company Number: US-ABBVIE-4229424

PATIENT
  Sex: Female

DRUGS (1)
  1. HUMIRA [Suspect]
     Active Substance: ADALIMUMAB
     Indication: Guttate psoriasis
     Dosage: STRENGTH- 40 MG
     Route: 058

REACTIONS (3)
  - Off label use [Unknown]
  - Injection site reaction [Unknown]
  - Device issue [Not Recovered/Not Resolved]
